FAERS Safety Report 8228486-5 (Version None)
Quarter: 2012Q1

REPORT INFORMATION
  Report Type: 
  Country: None (occurrence: None)
  Receive Date: 20120322
  Receipt Date: 20110527
  Transmission Date: 20120608
  Serious: No
  Sender: FDA-Public Use
  Company Number: US-BRISTOL-MYERS SQUIBB COMPANY-15785488

PATIENT
  Sex: Female

DRUGS (2)
  1. ERBITUX [Suspect]
     Indication: LUNG NEOPLASM MALIGNANT
  2. NAVELBINE [Suspect]
     Indication: LUNG NEOPLASM MALIGNANT

REACTIONS (3)
  - ODYNOPHAGIA [None]
  - MUCOSAL INFLAMMATION [None]
  - DYSPHAGIA [None]
